FAERS Safety Report 23860256 (Version 2)
Quarter: 2024Q2

REPORT INFORMATION
  Report Type: Spontaneous
  Country: US (occurrence: US)
  Receive Date: 20240515
  Receipt Date: 20240604
  Transmission Date: 20240716
  Serious: No
  Sender: FDA-Public Use
  Company Number: US-BEIGENE-BGN-2024-006980

PATIENT

DRUGS (1)
  1. BRUKINSA [Suspect]
     Active Substance: ZANUBRUTINIB
     Indication: Product used for unknown indication
     Dosage: 80 MILLIGRAM, BID
     Route: 065
     Dates: start: 20230626

REACTIONS (6)
  - Blood cholesterol increased [Unknown]
  - Drug intolerance [Unknown]
  - Arthralgia [Unknown]
  - Myalgia [Unknown]
  - Blood immunoglobulin G decreased [Unknown]
  - Fatigue [Unknown]
